FAERS Safety Report 7195057-1 (Version None)
Quarter: 2010Q4

REPORT INFORMATION
  Report Type: 
  Country: None (occurrence: None)
  Receive Date: 20101223
  Receipt Date: 20101216
  Transmission Date: 20110411
  Serious: Yes (Death)
  Sender: FDA-Public Use
  Company Number: DE-ACTELION-A-US2010-42927

PATIENT

DRUGS (1)
  1. ILOPROST INHALATION ROW [Suspect]
     Dosage: 5 UG, UNK
     Route: 055
     Dates: start: 20090504

REACTIONS (1)
  - DEATH [None]
